FAERS Safety Report 6339347-0 (Version None)
Quarter: 2009Q3

REPORT INFORMATION
  Report Type: 
  Country: None (occurrence: None)
  Receive Date: 20090903
  Receipt Date: 20090819
  Transmission Date: 20100115
  Serious: Yes (Other)
  Sender: FDA-Public Use
  Company Number: FR-GENENTECH-288339

PATIENT
  Sex: Female
  Weight: 60 kg

DRUGS (1)
  1. XOLAIR [Suspect]
     Indication: ASTHMA
     Dosage: 1 UNK, Q15D
     Dates: start: 20090101

REACTIONS (2)
  - DRUG ERUPTION [None]
  - LICHENOID KERATOSIS [None]
